FAERS Safety Report 6077074-8 (Version None)
Quarter: 2009Q1

REPORT INFORMATION
  Report Type: 
  Country: None (occurrence: None)
  Receive Date: 20090211
  Receipt Date: 20090211
  Transmission Date: 20090719
  Serious: Yes (Hospitalization)
  Sender: FDA-Public Use
  Company Number: None

PATIENT
  Age: 52 Year
  Sex: Female
  Weight: 82.1011 kg

DRUGS (2)
  1. SORAFENIB [Suspect]
     Indication: GLIOMA
     Dosage: 200 MG/ BID
     Dates: start: 20080615, end: 20080727
  2. TEMOLOZOMIDE [Suspect]
     Dosage: 75 MG/ BID
     Dates: start: 20080615, end: 20080627

REACTIONS (5)
  - ABDOMINAL PAIN [None]
  - CHEST DISCOMFORT [None]
  - DYSPNOEA [None]
  - LYMPHOCYTE COUNT ABNORMAL [None]
  - TACHYCARDIA [None]
